FAERS Safety Report 5397715-8 (Version None)
Quarter: 2007Q3

REPORT INFORMATION
  Report Type: 
  Country: None (occurrence: None)
  Receive Date: 20070726
  Receipt Date: 20070717
  Transmission Date: 20080115
  Serious: Yes (Death)
  Sender: FDA-Public Use
  Company Number: GB-AVENTIS-200716504GDDC

PATIENT
  Age: 49 Year
  Sex: Female
  Weight: 106.8 kg

DRUGS (16)
  1. INSULIN GLARGINE [Suspect]
     Indication: DIABETES MELLITUS
     Dosage: DOSE: UNK
     Route: 058
     Dates: start: 20050722
  2. NOVORAPID [Suspect]
     Indication: DIABETES MELLITUS
     Dosage: DOSE: UNK
     Dates: start: 20050722
  3. ROSIGLITAZONE [Suspect]
     Indication: DIABETES MELLITUS
     Route: 048
     Dates: start: 20050610
  4. BECLOMETHASONE DIPROPIONATE [Concomitant]
     Dosage: DOSE QUANTITY: 2
     Route: 055
  5. CETIRIZINE HCL [Concomitant]
     Route: 048
  6. FLUOXETINE [Concomitant]
     Route: 048
  7. FUROSEMIDE [Concomitant]
     Route: 048
  8. IPRATROPIUM BROMIDE [Concomitant]
  9. OMEPRAZOLE [Concomitant]
     Route: 048
  10. ACETAMINOPHEN [Concomitant]
     Dosage: DOSE QUANTITY: 2
     Route: 048
  11. PREDNISOLONE [Concomitant]
     Route: 048
  12. RISEDRONATE SODIUM [Concomitant]
     Route: 048
  13. SALBUTAMOL [Concomitant]
     Dosage: DOSE QUANTITY: 1
     Route: 055
  14. SALMETEROL [Concomitant]
     Dosage: DOSE QUANTITY: 2
     Route: 055
  15. SIMVASTATIN [Concomitant]
     Route: 048
  16. SODIUM CROMOGLICATE [Concomitant]
     Route: 047

REACTIONS (2)
  - ARTERIOSCLEROSIS CORONARY ARTERY [None]
  - PNEUMONIA [None]
